FAERS Safety Report 8247889-6 (Version None)
Quarter: 2012Q1

REPORT INFORMATION
  Report Type: 
  Country: None (occurrence: None)
  Receive Date: 20120330
  Receipt Date: 20120326
  Transmission Date: 20120608
  Serious: Yes (Hospitalization)
  Sender: FDA-Public Use
  Company Number: GB-MERCK-1203GBR00092

PATIENT
  Age: 86 Year
  Sex: Female

DRUGS (6)
  1. TRIMETHOPRIM [Suspect]
     Route: 048
     Dates: start: 20100716, end: 20100718
  2. AMOXICILLIN [Suspect]
     Route: 048
     Dates: start: 20110408, end: 20110409
  3. CEPHALEXIN [Suspect]
     Indication: URINARY TRACT INFECTION
     Route: 048
     Dates: start: 20110413, end: 20110417
  4. INVANZ [Suspect]
     Indication: CHOLECYSTITIS
     Route: 041
     Dates: start: 20110221, end: 20110223
  5. LEVOFLOXACIN [Suspect]
     Route: 048
     Dates: start: 20100223, end: 20100227
  6. PIPERACILLIN AND TAZOBACTAM [Suspect]
     Indication: CHOLECYSTITIS
     Route: 041
     Dates: start: 20110224, end: 20110302

REACTIONS (1)
  - CLOSTRIDIAL INFECTION [None]
